FAERS Safety Report 8942872 (Version 1)
Quarter: 2012Q4

REPORT INFORMATION
  Report Type: 
  Country: US (occurrence: US)
  Receive Date: 20121204
  Receipt Date: 20121204
  Transmission Date: 20130627
  Serious: Yes (Hospitalization)
  Sender: FDA-Public Use
  Company Number: US-BAYER-2012-124495

PATIENT
  Age: 49 Year
  Sex: Female

DRUGS (2)
  1. YAZ [Suspect]
  2. EFUDEX [Concomitant]
     Dosage: 5 %, UNK

REACTIONS (1)
  - Pulmonary embolism [None]
